FAERS Safety Report 17266085 (Version 2)
Quarter: 2020Q1

REPORT INFORMATION
  Report Type: Spontaneous
  Country: AU (occurrence: AU)
  Receive Date: 20200114
  Receipt Date: 20200123
  Transmission Date: 20200409
  Serious: Yes (Hospitalization, Other)
  Sender: FDA-Public Use
  Company Number: AU-SA-2020SA005387

PATIENT
  Age: 57 Year
  Sex: Male

DRUGS (12)
  1. CAPECITABINE. [Suspect]
     Active Substance: CAPECITABINE
     Indication: COLORECTAL CANCER METASTATIC
     Dosage: UNK UNK, QCY, TOTAL DOSE OF 93,750 MG OVER FOUR CYCLES
     Route: 048
  2. CETUXIMAB. [Suspect]
     Active Substance: CETUXIMAB
     Indication: COLORECTAL CANCER METASTATIC
     Dosage: UNK UNK, QCY
     Dates: start: 201903
  3. ENOXAPARIN [Concomitant]
     Active Substance: ENOXAPARIN
     Indication: PULMONARY EMBOLISM
     Dosage: UNK, QD
     Dates: start: 201812
  4. FLUOROURACIL. [Suspect]
     Active Substance: FLUOROURACIL
     Dosage: UNK UNK, QCY, BOLUS INJECTION
     Route: 040
     Dates: start: 201805
  5. FLUOROURACIL. [Suspect]
     Active Substance: FLUOROURACIL
     Dosage: UNK UNK, QCY, CONTINUOUS INFUSION OVER 46 HUNK UNK, QCY, CONTINUOUS INFUSION OVER 46 HOURS
     Route: 042
     Dates: start: 201805
  6. FOLINIC ACID [Suspect]
     Active Substance: LEUCOVORIN
     Dosage: UNK UNK, QCY
     Dates: start: 201805
  7. IRINOTECAN [Suspect]
     Active Substance: IRINOTECAN
     Indication: COLORECTAL CANCER METASTATIC
     Dosage: UNK, QCY
     Dates: start: 201903
  8. BEVACIZUMAB. [Suspect]
     Active Substance: BEVACIZUMAB
     Indication: COLORECTAL CANCER METASTATIC
     Dosage: UNK UNK, Q3W
  9. FOLINIC ACID [Suspect]
     Active Substance: LEUCOVORIN
     Indication: COLORECTAL CANCER METASTATIC
     Dosage: UNK, QCY
     Dates: start: 201903
  10. OXALIPLATIN. [Suspect]
     Active Substance: OXALIPLATIN
     Indication: COLORECTAL CANCER METASTATIC
     Dosage: UNK UNK, QCY
     Dates: start: 201805
  11. FLUOROURACIL. [Suspect]
     Active Substance: FLUOROURACIL
     Indication: COLORECTAL CANCER METASTATIC
     Dosage: INFUSION OVER 46 H
     Dates: start: 201903
  12. BEVACIZUMAB. [Suspect]
     Active Substance: BEVACIZUMAB
     Dosage: UNK
     Dates: start: 201805

REACTIONS (8)
  - Headache [Recovered/Resolved]
  - Nausea [Recovered/Resolved]
  - Optic neuritis [Recovered/Resolved]
  - Visual field defect [Recovered/Resolved]
  - Blindness [Recovered/Resolved]
  - Palmar-plantar erythrodysaesthesia syndrome [Unknown]
  - Dermatitis acneiform [Unknown]
  - Neuropathy peripheral [Not Recovered/Not Resolved]

NARRATIVE: CASE EVENT DATE: 2019
